FAERS Safety Report 10261399 (Version 1)
Quarter: 2014Q2

REPORT INFORMATION
  Report Type: Spontaneous
  Country: GB (occurrence: None)
  Receive Date: 20140623
  Receipt Date: 20140623
  Transmission Date: 20141212
  Serious: Yes (Disabling)
  Sender: FDA-Public Use
  Company Number: AUR-APL-2014-06519

PATIENT
  Age: 79 Year
  Sex: Male
  Weight: 79.3 kg

DRUGS (3)
  1. SIMVASTATIN [Suspect]
     Indication: PRODUCT USED FOR UNKNOWN INDICATION
     Dates: end: 20140314
  2. BETAMETHASONE VALERATE (BETAMETHASONE VALERATE) [Concomitant]
  3. HYPROMELLOSE (HYPROMELLOSE) [Concomitant]

REACTIONS (3)
  - Arthralgia [None]
  - Activities of daily living impaired [None]
  - Gait disturbance [None]
